FAERS Safety Report 25996107 (Version 1)
Quarter: 2025Q4

REPORT INFORMATION
  Report Type: Spontaneous
  Country: US (occurrence: None)
  Receive Date: 20251104
  Receipt Date: 20251104
  Transmission Date: 20260118
  Serious: Yes (Hospitalization)
  Sender: FDA-CTU
  Company Number: None

PATIENT
  Sex: Female

DRUGS (2)
  1. MYCOPHENOLATE MOFETIL [Suspect]
     Active Substance: MYCOPHENOLATE MOFETIL
     Indication: Renal transplant
     Dosage: 500 MG TWICE A DAY ORAL ?
     Route: 048
     Dates: start: 20240212
  2. ENVARSUS XR [Suspect]
     Active Substance: TACROLIMUS

REACTIONS (1)
  - Urinary tract infection [None]
